FAERS Safety Report 25643741 (Version 1)
Quarter: 2025Q3

REPORT INFORMATION
  Report Type: Spontaneous
  Country: US (occurrence: US)
  Receive Date: 20250805
  Receipt Date: 20250805
  Transmission Date: 20251021
  Serious: No
  Sender: ABBVIE
  Company Number: US-ABBVIE-6392417

PATIENT
  Age: 62 Year
  Sex: Male

DRUGS (4)
  1. DURYSTA [Suspect]
     Active Substance: BIMATOPROST
     Indication: Product used for unknown indication
     Route: 050
     Dates: start: 20250612, end: 20250612
  2. Sertan [Concomitant]
     Indication: Product used for unknown indication
  3. COSOPT [Concomitant]
     Active Substance: DORZOLAMIDE HYDROCHLORIDE\TIMOLOL MALEATE
     Indication: Product used for unknown indication
  4. BRIMONIDINE [Concomitant]
     Active Substance: BRIMONIDINE TARTRATE
     Indication: Product used for unknown indication

REACTIONS (5)
  - Eye inflammation [Unknown]
  - Photophobia [Unknown]
  - Eye irritation [Unknown]
  - Ocular hyperaemia [Unknown]
  - Medical device site discomfort [Unknown]

NARRATIVE: CASE EVENT DATE: 20250101
